FAERS Safety Report 24111635 (Version 1)
Quarter: 2024Q3

REPORT INFORMATION
  Report Type: Spontaneous
  Country: CN (occurrence: CN)
  Receive Date: 20240718
  Receipt Date: 20240718
  Transmission Date: 20241017
  Serious: Yes (Hospitalization)
  Sender: ROCHE
  Company Number: CN-BoehringerIngelheim-2024-BI-039766

PATIENT
  Age: 67 Year
  Sex: Male

DRUGS (2)
  1. ALTEPLASE [Suspect]
     Active Substance: ALTEPLASE
     Indication: Pulmonary embolism
     Route: 029
     Dates: start: 20240627, end: 20240627
  2. ALTEPLASE [Suspect]
     Active Substance: ALTEPLASE
     Route: 029
     Dates: start: 20240628, end: 20240628

REACTIONS (4)
  - Subcutaneous haematoma [Recovering/Resolving]
  - Haemoptysis [Recovering/Resolving]
  - Blood fibrinogen decreased [Recovering/Resolving]
  - Product use issue [Unknown]

NARRATIVE: CASE EVENT DATE: 20240628
